FAERS Safety Report 16120870 (Version 1)
Quarter: 2019Q1

REPORT INFORMATION
  Report Type: Spontaneous
  Country: SE (occurrence: SE)
  Receive Date: 20190327
  Receipt Date: 20190327
  Transmission Date: 20190418
  Serious: Yes (Hospitalization)
  Sender: FDA-Public Use
  Company Number: SE-ROCHE-2289834

PATIENT
  Age: 57 Year
  Sex: Male

DRUGS (4)
  1. RITUXIMAB. [Suspect]
     Active Substance: RITUXIMAB
     Indication: CHRONIC INFLAMMATORY DEMYELINATING POLYRADICULONEUROPATHY
     Route: 065
     Dates: start: 201109
  2. MELPHALAN. [Concomitant]
     Active Substance: MELPHALAN
     Indication: DRUG THERAPY
     Route: 065
  3. CARMUSTINE. [Concomitant]
     Active Substance: CARMUSTINE
     Indication: DRUG THERAPY
     Route: 065
  4. CARMUSTINE. [Concomitant]
     Active Substance: CARMUSTINE
     Indication: DEMYELINATING POLYNEUROPATHY
     Route: 065

REACTIONS (3)
  - Cytomegalovirus colitis [Unknown]
  - Drug resistance [Unknown]
  - Bacteraemia [Unknown]
